FAERS Safety Report 13165092 (Version 1)
Quarter: 2017Q1

REPORT INFORMATION
  Report Type: Report from Study
  Country: US (occurrence: US)
  Receive Date: 20170130
  Receipt Date: 20170130
  Transmission Date: 20170428
  Serious: No
  Sender: FDA-Public Use
  Company Number: US-AMGEN-USASL2017012245

PATIENT
  Sex: Female

DRUGS (1)
  1. ENBREL [Suspect]
     Active Substance: ETANERCEPT
     Indication: RHEUMATOID ARTHRITIS
     Dosage: UNK
     Route: 065

REACTIONS (5)
  - Pharyngeal disorder [Not Recovered/Not Resolved]
  - Cough [Unknown]
  - Visual acuity reduced [Not Recovered/Not Resolved]
  - Nasal congestion [Not Recovered/Not Resolved]
  - Therapeutic response decreased [Unknown]
